FAERS Safety Report 11242088 (Version 2)
Quarter: 2015Q3

REPORT INFORMATION
  Report Type: Spontaneous
  Country: NL (occurrence: NL)
  Receive Date: 20150706
  Receipt Date: 20150724
  Transmission Date: 20151125
  Serious: Yes (Life-Threatening, Hospitalization)
  Sender: FDA-Public Use
  Company Number: NL-SA-2015SA093207

PATIENT
  Age: 54 Year
  Sex: Male

DRUGS (10)
  1. FUROSEMIDE. [Suspect]
     Active Substance: FUROSEMIDE
     Indication: CARDIAC DISORDER
     Route: 048
     Dates: start: 20150302
  2. PAROXETINE [Concomitant]
     Active Substance: PAROXETINE\PAROXETINE HYDROCHLORIDE
     Dosage: STRENGTH: 20MG
     Route: 048
  3. GLICLAZIDE [Concomitant]
     Active Substance: GLICLAZIDE
     Dosage: STENGTH: 30MG
     Route: 048
  4. METOPROLOL SUCCINATE. [Concomitant]
     Active Substance: METOPROLOL SUCCINATE
     Dosage: STRENGTH: 25MG DOSE:.5 UNIT(S)
     Route: 048
  5. JANUVIA [Suspect]
     Active Substance: SITAGLIPTIN PHOSPHATE
     Indication: DIABETES MELLITUS
     Route: 048
     Dates: start: 2015, end: 2015
  6. ASCAL BRISPER CARDIO-NEURO [Concomitant]
     Active Substance: ASPIRIN\CARBASPIRIN CALCIUM
     Dosage: STRENGTH: 100 MG
     Route: 048
  7. ATORVASTATIN [Concomitant]
     Active Substance: ATORVASTATIN
     Dosage: STRENGTH: 40MG
     Route: 048
  8. METFORMIN/GLIBENCLAMIDE [Concomitant]
     Dosage: STRENGTH: 5/500MG
     Route: 048
  9. ENALAPRIL [Suspect]
     Active Substance: ENALAPRIL
     Indication: CARDIAC DISORDER
     Route: 048
     Dates: start: 19980101, end: 20150620
  10. OMEPRAZOLE. [Concomitant]
     Active Substance: OMEPRAZOLE
     Dosage: STRENGTH: 40MG
     Route: 048

REACTIONS (1)
  - Angioedema [Recovered/Resolved]

NARRATIVE: CASE EVENT DATE: 20150620
